FAERS Safety Report 12919080 (Version 3)
Quarter: 2017Q1

REPORT INFORMATION
  Report Type: Spontaneous
  Country: IT (occurrence: IT)
  Receive Date: 20161108
  Receipt Date: 20170203
  Transmission Date: 20170428
  Serious: Yes (Hospitalization)
  Sender: FDA-Public Use
  Company Number: IT-ROCHE-1851560

PATIENT
  Age: 54 Year
  Sex: Female

DRUGS (3)
  1. RIVOTRIL [Suspect]
     Active Substance: CLONAZEPAM
     Indication: PRODUCT USED FOR UNKNOWN INDICATION
     Dosage: ^2.5 MG/ML ORAL DROPS, SOLUTION^ 10 ML BOTTLE
     Route: 048
     Dates: start: 20160919, end: 20160919
  2. CARDIOASPIRIN [Concomitant]
     Active Substance: ASPIRIN
     Route: 048
  3. MODURETIC 5-50 [Concomitant]
     Active Substance: AMILORIDE HYDROCHLORIDE\HYDROCHLOROTHIAZIDE
     Route: 048

REACTIONS (3)
  - Sopor [Not Recovered/Not Resolved]
  - Drug abuse [Unknown]
  - Overdose [Unknown]

NARRATIVE: CASE EVENT DATE: 20160919
